FAERS Safety Report 16689886 (Version 3)
Quarter: 2021Q2

REPORT INFORMATION
  Report Type: Report from Study
  Country: US (occurrence: US)
  Receive Date: 20190809
  Receipt Date: 20210527
  Transmission Date: 20210716
  Serious: No
  Sender: FDA-Public Use
  Company Number: US-SHIRE-US201925398

PATIENT
  Sex: Male

DRUGS (4)
  1. TEDUGLUTIDE [Suspect]
     Active Substance: TEDUGLUTIDE
     Indication: SHORT-BOWEL SYNDROME
     Dosage: 0.135 (UNIT UNKNOWN)
     Route: 058
     Dates: start: 20180222
  2. TEDUGLUTIDE [Suspect]
     Active Substance: TEDUGLUTIDE
     Indication: SHORT-BOWEL SYNDROME
     Dosage: 0.135 (UNIT UNKNOWN)
     Route: 058
     Dates: start: 20180222
  3. TEDUGLUTIDE [Suspect]
     Active Substance: TEDUGLUTIDE
     Indication: SHORT-BOWEL SYNDROME
     Dosage: 0.135 (UNIT UNKNOWN)
     Route: 058
     Dates: start: 20180222
  4. TEDUGLUTIDE [Suspect]
     Active Substance: TEDUGLUTIDE
     Indication: SHORT-BOWEL SYNDROME
     Dosage: 0.135 (UNIT UNKNOWN)
     Route: 058
     Dates: start: 20180222

REACTIONS (5)
  - Nausea [Unknown]
  - Dehydration [Unknown]
  - Weight increased [Not Recovered/Not Resolved]
  - Faeces hard [Unknown]
  - Dyspnoea [Unknown]
